FAERS Safety Report 9116287 (Version 1)
Quarter: 2013Q1

REPORT INFORMATION
  Report Type: Spontaneous
  Country: KZ (occurrence: KZ)
  Receive Date: 20130225
  Receipt Date: 20130225
  Transmission Date: 20140127
  Serious: Yes (Death)
  Sender: FDA-Public Use
  Company Number: KZ-ACTELION-A-CH2013-79779

PATIENT
  Age: 14 Year
  Sex: Female
  Weight: 34 kg

DRUGS (2)
  1. TRACLEER [Suspect]
     Indication: PULMONARY ARTERIAL HYPERTENSION
     Dosage: 62.5 MG, BID
     Route: 048
  2. TRACLEER [Suspect]
     Dosage: 31.25 MG, BID
     Route: 048
     Dates: start: 20120715

REACTIONS (2)
  - Pulmonary arterial hypertension [Fatal]
  - Heart disease congenital [Fatal]
